FAERS Safety Report 13611282 (Version 1)
Quarter: 2017Q2

REPORT INFORMATION
  Report Type: Spontaneous
  Country: US (occurrence: US)
  Receive Date: 20170604
  Receipt Date: 20170604
  Transmission Date: 20170830
  Serious: No
  Sender: FDA-Public Use
  Company Number: None

PATIENT
  Age: 31 Year
  Sex: Male
  Weight: 88.65 kg

DRUGS (5)
  1. PEPTO-BISMOL [Concomitant]
     Active Substance: BISMUTH SUBSALICYLATE
  2. MULTI VITAMIN [Concomitant]
     Active Substance: VITAMINS
  3. TRAZODONE [Suspect]
     Active Substance: TRAZODONE HYDROCHLORIDE
     Indication: DEPRESSION
     Dosage: ?          QUANTITY:2 TABLET(S);?
     Route: 048
     Dates: start: 20170525
  4. TUMS [Concomitant]
     Active Substance: CALCIUM CARBONATE
  5. PALIPERIDONE (BRAND NAME INVEGA) [Concomitant]

REACTIONS (5)
  - Oropharyngeal spasm [None]
  - Muscle spasms [None]
  - Oropharyngeal pain [None]
  - Dysphagia [None]
  - Pharyngeal oedema [None]

NARRATIVE: CASE EVENT DATE: 20170603
